FAERS Safety Report 13689274 (Version 1)
Quarter: 2017Q2

REPORT INFORMATION
  Report Type: Spontaneous
  Country: US (occurrence: US)
  Receive Date: 20170625
  Receipt Date: 20170625
  Transmission Date: 20170830
  Serious: Yes (Disabling)
  Sender: FDA-Public Use
  Company Number: None

PATIENT
  Age: 69 Year
  Sex: Female
  Weight: 78.75 kg

DRUGS (10)
  1. POTASSIUM [Concomitant]
     Active Substance: POTASSIUM
  2. CENTRUM SILVER [Concomitant]
     Active Substance: MINERALS\VITAMINS
  3. LEVAQUIN [Suspect]
     Active Substance: LEVOFLOXACIN
     Indication: SINUSITIS
     Dates: start: 20120621, end: 20160915
  4. AVELOX [Suspect]
     Active Substance: MOXIFLOXACIN HYDROCHLORIDE
     Dates: start: 20120621, end: 20160915
  5. PROBIOTICS [Concomitant]
     Active Substance: PROBIOTICS NOS
  6. SYNTHROID [Concomitant]
     Active Substance: LEVOTHYROXINE SODIUM
  7. ATENOLOL. [Concomitant]
     Active Substance: ATENOLOL
  8. CALTRATE [Concomitant]
     Active Substance: CALCIUM CARBONATE
  9. EVENING PRIMROSE OIL [Concomitant]
     Active Substance: EVENING PRIMROSE OIL
  10. LASIC [Concomitant]

REACTIONS (8)
  - Dysstasia [None]
  - Tendon rupture [None]
  - Musculoskeletal pain [None]
  - Arthralgia [None]
  - Anger [None]
  - Gait disturbance [None]
  - Synovial cyst [None]
  - Depression [None]

NARRATIVE: CASE EVENT DATE: 20120621
